FAERS Safety Report 7093179-7 (Version None)
Quarter: 2010Q4

REPORT INFORMATION
  Report Type: 
  Country: None (occurrence: None)
  Receive Date: 20101110
  Receipt Date: 20101029
  Transmission Date: 20110411
  Serious: Yes (Hospitalization, Other)
  Sender: FDA-Public Use
  Company Number: US-JNJFOC-20070604853

PATIENT
  Sex: Male
  Weight: 72.58 kg

DRUGS (3)
  1. LEVAQUIN [Suspect]
     Indication: BRONCHITIS
     Route: 048
  2. LEVAQUIN [Suspect]
     Indication: PROSTATITIS
     Route: 048
  3. ACCUPRIL [Concomitant]
     Route: 065

REACTIONS (5)
  - INTERVERTEBRAL DISC DEGENERATION [None]
  - NERVE ROOT COMPRESSION [None]
  - TENDON OPERATION [None]
  - TENDON RUPTURE [None]
  - TENDONITIS [None]
